FAERS Safety Report 4354611-2 (Version None)
Quarter: 2004Q2

REPORT INFORMATION
  Report Type: 
  Country: None (occurrence: None)
  Receive Date: 20040503
  Receipt Date: 20040427
  Transmission Date: 20050107
  Serious: Yes (Other)
  Sender: FDA-Public Use
  Company Number: US-SHR-04-020770

PATIENT
  Age: 78 Year
  Sex: Female
  Weight: 80.7 kg

DRUGS (4)
  1. MAGNEVIST [Suspect]
     Dosage: 60 ML, 1 DOSE, INTRAVENOUS
     Route: 042
     Dates: start: 20040203
  2. GLUCOTROL [Concomitant]
  3. ASPIRIN [Concomitant]
  4. UNIRETIC (MOXEIPRIL HYDROCHLORIDE) [Concomitant]

REACTIONS (8)
  - ABDOMINAL PAIN UPPER [None]
  - APHONIA [None]
  - CHEST PAIN [None]
  - CONTRAST MEDIA REACTION [None]
  - CRYING [None]
  - DYSPHAGIA [None]
  - HOARSENESS [None]
  - PROCEDURAL COMPLICATION [None]
